FAERS Safety Report 16467471 (Version 1)
Quarter: 2019Q2

REPORT INFORMATION
  Report Type: Report from Study
  Country: PT (occurrence: PT)
  Receive Date: 20190624
  Receipt Date: 20190624
  Transmission Date: 20190711
  Serious: Yes (Hospitalization)
  Sender: FDA-Public Use
  Company Number: PT-ROCHE-2138381

PATIENT
  Age: 45 Year
  Sex: Female
  Weight: 55 kg

DRUGS (10)
  1. ISONIAZID. [Concomitant]
     Active Substance: ISONIAZID
     Route: 065
     Dates: start: 20180401
  2. METOCLOPRAMIDE. [Concomitant]
     Active Substance: METOCLOPRAMIDE
     Dosage: ONGOING = CHECKED
     Route: 065
     Dates: start: 20161107
  3. CLONIXIN [Concomitant]
     Active Substance: CLONIXIN
     Dosage: ONGOING = CHECKED
     Route: 065
     Dates: start: 20161107
  4. TRASTUZUMAB. [Suspect]
     Active Substance: TRASTUZUMAB
     Indication: HER-2 POSITIVE BREAST CANCER
     Dosage: MOST RECENT DOSE WAS ON 12/MAR/2018
     Route: 058
     Dates: start: 20161107
  5. PERTUZUMAB. [Suspect]
     Active Substance: PERTUZUMAB
     Indication: HER-2 POSITIVE BREAST CANCER
     Dosage: MOST RECENT DOSE PRIOR TO THE EVENT: 28/NOV/2016
     Route: 042
     Dates: start: 20161107
  6. NOLVADEX [Suspect]
     Active Substance: TAMOXIFEN CITRATE
     Indication: HER-2 POSITIVE BREAST CANCER
     Route: 048
     Dates: start: 20170417
  7. ESOMEPRAZOLE. [Concomitant]
     Active Substance: ESOMEPRAZOLE MAGNESIUM
     Dosage: ONGOING = CHECKED
     Route: 065
     Dates: start: 20161107
  8. TAXOTERE [Suspect]
     Active Substance: DOCETAXEL
     Indication: HER-2 POSITIVE BREAST CANCER
     Dosage: MOST RECENT DOSE WAS ON 28/MAR/2017
     Route: 042
     Dates: start: 20161107
  9. TRIPTORELIN [Concomitant]
     Active Substance: TRIPTORELIN
     Dosage: ONGOING = CHECKED
     Route: 065
     Dates: start: 20180312
  10. NISTATIN [Concomitant]
     Active Substance: NYSTATIN
     Dosage: ONGOING = CHECKED
     Route: 065
     Dates: start: 20161107

REACTIONS (2)
  - Central nervous system lesion [Recovered/Resolved]
  - Headache [Recovered/Resolved]

NARRATIVE: CASE EVENT DATE: 20180402
